FAERS Safety Report 7674603-5 (Version None)
Quarter: 2011Q3

REPORT INFORMATION
  Report Type: 
  Country: None (occurrence: None)
  Receive Date: 20110810
  Receipt Date: 20110802
  Transmission Date: 20111222
  Serious: Yes (Other)
  Sender: FDA-Public Use
  Company Number: RU-ROCHE-792564

PATIENT
  Sex: Female

DRUGS (3)
  1. AMITRIPTYLINE HCL [Concomitant]
     Indication: DEPRESSION
     Route: 048
  2. PIPOFEZINE [Concomitant]
     Indication: DEPRESSION
     Route: 048
  3. PEGASYS [Suspect]
     Indication: HEPATITIS B
     Dosage: DATE OF LAST INFUSION: 27 JULY 2011
     Route: 058
     Dates: start: 20110209

REACTIONS (1)
  - BURSITIS INFECTIVE [None]
